FAERS Safety Report 7950551-8 (Version None)
Quarter: 2011Q4

REPORT INFORMATION
  Report Type: 
  Country: None (occurrence: None)
  Receive Date: 20111130
  Receipt Date: 20111114
  Transmission Date: 20120403
  Serious: Yes (Other)
  Sender: FDA-Public Use
  Company Number: CA-ROCHE-1015317

PATIENT
  Sex: Female
  Weight: 86.8 kg

DRUGS (5)
  1. PEGINTERFERON ALFA-2A [Suspect]
     Indication: HEPATITIS C
     Route: 058
     Dates: start: 20111004, end: 20111004
  2. ACETAMINOPHEN AND CODEINE PHOSPHATE [Concomitant]
     Indication: MIGRAINE
     Dates: start: 20090101
  3. COPEGUS [Suspect]
     Indication: HEPATITIS C
     Route: 048
     Dates: start: 20101004, end: 20101010
  4. ACETAMINOPHEN [Concomitant]
     Indication: MIGRAINE
     Dates: start: 20090101
  5. BI 201335 (HCV PROTEASE INHIBITOR) [Suspect]
     Indication: HEPATITIS C

REACTIONS (2)
  - ABORTION SPONTANEOUS [None]
  - MATERNAL DRUGS AFFECTING FOETUS [None]
